FAERS Safety Report 8336442-1 (Version None)
Quarter: 2012Q2

REPORT INFORMATION
  Report Type: 
  Country: None (occurrence: None)
  Receive Date: 20120504
  Receipt Date: 20120501
  Transmission Date: 20120825
  Serious: Yes (Other)
  Sender: FDA-Public Use
  Company Number: IL-PFIZER INC-2012107157

PATIENT
  Age: 84 Year
  Sex: Male

DRUGS (2)
  1. GLUCOMIN [Concomitant]
     Dosage: UNK, TWICE A DAY
  2. LYRICA [Suspect]
     Indication: NEURALGIA
     Dosage: 150 MG, 2X/DAY

REACTIONS (2)
  - DRUG INEFFECTIVE [None]
  - DIABETES MELLITUS [None]
